FAERS Safety Report 4770896-2 (Version None)
Quarter: 2005Q3

REPORT INFORMATION
  Report Type: 
  Country: None (occurrence: None)
  Receive Date: 20050915
  Receipt Date: 20050906
  Transmission Date: 20060218
  Serious: Yes (Other)
  Sender: FDA-Public Use
  Company Number: JP-ROCHE-416722

PATIENT
  Age: 65 Year
  Sex: Male

DRUGS (2)
  1. NICARDIPINE HCL [Suspect]
     Indication: HYPERTENSION
     Dosage: SECOND INDICATION: GOUT.
     Route: 048
     Dates: end: 20030417
  2. ALLOPURINOL [Suspect]
     Indication: HYPERTENSION
     Dosage: SECOND INDICATION: GOUT.
     Route: 048
     Dates: end: 20030417

REACTIONS (9)
  - ARTHROPOD BITE [None]
  - BLISTER [None]
  - DERMATITIS CONTACT [None]
  - ECZEMA [None]
  - EOSINOPHILIC CELLULITIS [None]
  - GLOMERULONEPHRITIS [None]
  - RASH PAPULAR [None]
  - RENAL DISORDER [None]
  - SCAB [None]
